FAERS Safety Report 7128846-X (Version None)
Quarter: 2010Q4

REPORT INFORMATION
  Report Type: 
  Country: None (occurrence: None)
  Receive Date: 20101130
  Receipt Date: 20101123
  Transmission Date: 20110411
  Serious: Yes (Hospitalization)
  Sender: FDA-Public Use
  Company Number: CO-ROCHE-743740

PATIENT
  Sex: Female

DRUGS (2)
  1. HERCEPTIN [Suspect]
     Indication: BREAST CANCER
     Route: 042
     Dates: start: 20100930
  2. XELODA [Suspect]
     Indication: BREAST CANCER
     Route: 048
     Dates: start: 20100930

REACTIONS (2)
  - RENAL FAILURE [None]
  - VOMITING [None]
